FAERS Safety Report 4886077-8 (Version None)
Quarter: 2006Q1

REPORT INFORMATION
  Report Type: 
  Country: None (occurrence: None)
  Receive Date: 20060117
  Receipt Date: 20060104
  Transmission Date: 20060701
  Serious: Yes (Other)
  Sender: FDA-Public Use
  Company Number: 220724

PATIENT
  Age: 46 Year
  Sex: Female

DRUGS (2)
  1. HERCEPTIN [Suspect]
     Indication: BREAST CANCER METASTATIC
     Dosage: 5 MG/KG, SINGLE,; 2 MG/KG, 1/WEEK
     Dates: start: 20050909
  2. SUPPLEMENT NOS (SUPPLEMENTS) [Concomitant]

REACTIONS (3)
  - DERMATOMYOSITIS [None]
  - HYPERKERATOSIS [None]
  - PARAKERATOSIS [None]
